FAERS Safety Report 14101696 (Version 2)
Quarter: 2017Q4

REPORT INFORMATION
  Report Type: Spontaneous
  Country: IT (occurrence: IT)
  Receive Date: 20171018
  Receipt Date: 20171024
  Transmission Date: 20180321
  Serious: Yes (Hospitalization)
  Sender: FDA-Public Use
  Company Number: IT-ROCHE-2008921

PATIENT
  Age: 75 Year
  Sex: Female

DRUGS (3)
  1. MABTHERA [Suspect]
     Active Substance: RITUXIMAB
     Indication: RHEUMATOID ARTHRITIS
     Dosage: 1 VIAL 500 MG 50 ML, 2 VIALS EVERY 6 MONTHS
     Route: 042
     Dates: start: 20140101, end: 20170601
  2. METHOTREXATE. [Concomitant]
     Active Substance: METHOTREXATE
     Dosage: ^10 MG/1.33 ML- 4 PRE-FILLED SYRINGES 1.33 ML
     Route: 065
  3. DEFLAZACORT [Concomitant]
     Active Substance: DEFLAZACORT
     Dosage: ^6 MG TABLETS^ 10 TABLETS?DEFLAZACORT EG
     Route: 065

REACTIONS (1)
  - Breast cancer [Recovered/Resolved with Sequelae]

NARRATIVE: CASE EVENT DATE: 20170601
